FAERS Safety Report 23028123 (Version 1)
Quarter: 2023Q4

REPORT INFORMATION
  Report Type: Spontaneous
  Country: CA (occurrence: CA)
  Receive Date: 20231004
  Receipt Date: 20231004
  Transmission Date: 20240110
  Serious: Yes (Hospitalization, Other)
  Sender: FDA-Public Use
  Company Number: CA-BAXTER-2023BAX032444

PATIENT
  Age: 62 Year
  Sex: Female

DRUGS (17)
  1. DOXORUBICIN [Suspect]
     Active Substance: DOXORUBICIN
     Indication: Light chain disease
     Dosage: UNK, THERAPY DURATION -68.0
     Route: 065
  2. CYCLOPHOSPHAMIDE [Suspect]
     Active Substance: CYCLOPHOSPHAMIDE
     Indication: Plasma cell myeloma
     Dosage: UNK
     Route: 065
  3. CYCLOPHOSPHAMIDE [Suspect]
     Active Substance: CYCLOPHOSPHAMIDE
     Dosage: 1500.0 MG/M2, DOSAGE FORM NOT SPECIFIED
     Route: 065
  4. CARFILZOMIB [Suspect]
     Active Substance: CARFILZOMIB
     Indication: Plasma cell myeloma
     Dosage: 36.0 MG/M2, 1 EVERY 1 WEEK
     Route: 065
  5. CARFILZOMIB [Suspect]
     Active Substance: CARFILZOMIB
     Dosage: UNK
     Route: 065
  6. CISPLATIN [Suspect]
     Active Substance: CISPLATIN
     Indication: Light chain disease
     Dosage: UNK, THERAPY DURATION -68.0
     Route: 065
  7. DARATUMUMAB [Suspect]
     Active Substance: DARATUMUMAB
     Indication: Plasma cell myeloma
     Dosage: UNK, DOSAGE FORM SOLUTION INTRAVENOUS
     Route: 065
  8. DEXAMETHASONE [Suspect]
     Active Substance: DEXAMETHASONE
     Indication: Plasma cell myeloma
     Dosage: UNK
     Route: 065
  9. DEXAMETHASONE [Suspect]
     Active Substance: DEXAMETHASONE
     Dosage: UNK, DOSAGE FORM NOT SPECIFIED
     Route: 065
  10. DEXAMETHASONE [Suspect]
     Active Substance: DEXAMETHASONE
     Dosage: UNK
     Route: 065
  11. ETOPOSIDE PHOSPHATE [Suspect]
     Active Substance: ETOPOSIDE PHOSPHATE
     Indication: Light chain disease
     Dosage: UNK, THERAPY DURATION -68.0
     Route: 065
  12. FILGRASTIM [Suspect]
     Active Substance: FILGRASTIM
     Indication: Plasma cell myeloma
     Dosage: UNK, DOSAGE FORM NOT SPECIFIED
     Route: 065
  13. REVLIMID [Suspect]
     Active Substance: LENALIDOMIDE
     Indication: Plasma cell myeloma
     Dosage: 25 MILLIGRAM
     Route: 065
  14. REVLIMID [Suspect]
     Active Substance: LENALIDOMIDE
     Dosage: 10 GRAM,1 EVERY 1 DAY, DOSAGE FORM CAPSULES
     Route: 065
  15. VELCADE [Suspect]
     Active Substance: BORTEZOMIB
     Indication: Plasma cell myeloma
     Dosage: UNK, SINGLE USE VIAL, DOSAGE FORM POWDER FOR SOLUTION INTRAVENOUS
     Route: 065
  16. VENCLEXTA [Suspect]
     Active Substance: VENETOCLAX
     Indication: Product used for unknown indication
     Dosage: 400 MILLIGRAM
     Route: 048
  17. VENCLEXTA [Suspect]
     Active Substance: VENETOCLAX
     Dosage: 800 MILLIGRAM
     Route: 048

REACTIONS (13)
  - Aggression [Unknown]
  - Stem cell transplant [Unknown]
  - Osteolysis [Unknown]
  - Gastrointestinal disorder [Unknown]
  - Disease progression [Unknown]
  - Fibrosis [Unknown]
  - Blood disorder [Unknown]
  - Hepatic enzyme increased [Unknown]
  - Renal failure [Unknown]
  - Blood calcium increased [Unknown]
  - Confusional state [Unknown]
  - Pyrexia [Unknown]
  - Anaemia [Unknown]
